FAERS Safety Report 8568744-8 (Version None)
Quarter: 2012Q3

REPORT INFORMATION
  Report Type: 
  Country: None (occurrence: None)
  Receive Date: 20120803
  Receipt Date: 20120125
  Transmission Date: 20120928
  Serious: No
  Sender: FDA-Public Use
  Company Number: US-ABBOTT-12P-163-0898828-00

PATIENT
  Sex: Male
  Weight: 79.45 kg

DRUGS (11)
  1. ASPIRIN [Concomitant]
     Indication: CARDIOVASCULAR EVENT PROPHYLAXIS
  2. NIASPAN [Suspect]
     Indication: HIGH DENSITY LIPOPROTEIN DECREASED
     Dates: start: 20100601, end: 20100701
  3. DIOVAN HCT [Concomitant]
     Indication: HYPERTENSION
  4. BYSTOLIC [Concomitant]
     Indication: HYPERTENSION
  5. POTASSIUM [Concomitant]
     Indication: MINERAL SUPPLEMENTATION
  6. NIASPAN [Suspect]
     Dosage: 1500 MG DAILY
     Dates: start: 20100901
  7. NEXIUM [Concomitant]
     Indication: GASTROOESOPHAGEAL REFLUX DISEASE
  8. LOVASA [Concomitant]
     Indication: BLOOD CHOLESTEROL INCREASED
  9. NIASPAN [Suspect]
     Dosage: 1000 MG DAILY
     Dates: start: 20100701, end: 20100901
  10. LIPITOR [Concomitant]
     Indication: BLOOD CHOLESTEROL INCREASED
  11. SINGULAIR [Concomitant]
     Indication: ASTHMA

REACTIONS (1)
  - PROSTATIC SPECIFIC ANTIGEN INCREASED [None]
